FAERS Safety Report 9688153 (Version 1)
Quarter: 2013Q4

REPORT INFORMATION
  Report Type: Spontaneous
  Country: US (occurrence: None)
  Receive Date: 20131113
  Receipt Date: 20131113
  Transmission Date: 20140711
  Serious: Yes (Life-Threatening, Hospitalization, Other)
  Sender: FDA-Public Use
  Company Number: None

PATIENT
  Age: 32 Year
  Sex: Female
  Weight: 77.11 kg

DRUGS (2)
  1. ORAQIX [Suspect]
     Indication: DENTAL CLEANING
     Dosage: APPLIED ALONG GUM LINE ONCE?2.5%/2.5%
     Dates: start: 20131105, end: 20131105
  2. ORAQIX [Suspect]
     Indication: ANAESTHESIA
     Dosage: APPLIED ALONG GUM LINE ONCE?2.5%/2.5%
     Dates: start: 20131105, end: 20131105

REACTIONS (1)
  - Anaphylactic shock [None]
